FAERS Safety Report 8237791-8 (Version None)
Quarter: 2012Q1

REPORT INFORMATION
  Report Type: 
  Country: None (occurrence: None)
  Receive Date: 20120327
  Receipt Date: 20120320
  Transmission Date: 20120608
  Serious: No
  Sender: FDA-Public Use
  Company Number: US-PFIZER INC-2012075954

PATIENT
  Sex: Female

DRUGS (2)
  1. LATANOPROST [Concomitant]
  2. SERTRALINE HYDROCHLORIDE [Suspect]

REACTIONS (1)
  - INFLAMMATION [None]
